FAERS Safety Report 5407569-9 (Version None)
Quarter: 2007Q3

REPORT INFORMATION
  Report Type: 
  Country: None (occurrence: None)
  Receive Date: 20070713
  Receipt Date: 20070430
  Transmission Date: 20080115
  Serious: No
  Sender: FDA-Public Use
  Company Number: 2007SP001555

PATIENT
  Age: 38 Year
  Sex: Female
  Weight: 77.1115 kg

DRUGS (8)
  1. LUNESTA [Suspect]
     Indication: INSOMNIA
     Dosage: 2 MG; HS; ORAL; 3 MG; HS; ORAL; 5 MG; HS; ORAL
     Route: 048
     Dates: start: 20051201, end: 20060401
  2. LUNESTA [Suspect]
     Indication: INSOMNIA
     Dosage: 2 MG; HS; ORAL; 3 MG; HS; ORAL; 5 MG; HS; ORAL
     Route: 048
     Dates: start: 20060401, end: 20060801
  3. LUNESTA [Suspect]
     Indication: INSOMNIA
     Dosage: 2 MG; HS; ORAL; 3 MG; HS; ORAL; 5 MG; HS; ORAL
     Route: 048
     Dates: start: 20070301, end: 20070401
  4. ATIVAN [Suspect]
     Indication: INSOMNIA
     Dosage: 0.5 MG; HS; ORAL
     Route: 048
     Dates: start: 20060801, end: 20070301
  5. ARTANE [Concomitant]
  6. COGENTIN [Concomitant]
  7. VICODIN [Concomitant]
  8. ATIVAN [Concomitant]

REACTIONS (3)
  - DRUG EFFECT DECREASED [None]
  - INSOMNIA [None]
  - OVARIAN CYST [None]
